FAERS Safety Report 14163109 (Version 1)
Quarter: 2017Q4

REPORT INFORMATION
  Report Type: Spontaneous
  Country: CN (occurrence: CN)
  Receive Date: 20171106
  Receipt Date: 20171106
  Transmission Date: 20180321
  Serious: Yes (Other)
  Sender: FDA-Public Use
  Company Number: CN-BAYER-2017-209909

PATIENT
  Age: 85 Year
  Sex: Male
  Weight: 70 kg

DRUGS (2)
  1. RIBONUCLEIC ACID SODIUM [Concomitant]
     Indication: IMMUNE ENHANCEMENT THERAPY
     Dosage: 300 MG, QD
     Route: 041
     Dates: start: 20170829, end: 20170908
  2. AVELOX [Suspect]
     Active Substance: MOXIFLOXACIN HYDROCHLORIDE
     Dosage: 0.5 G, QD
     Route: 041
     Dates: start: 20170829, end: 20170902

REACTIONS (1)
  - Mouth ulceration [Recovering/Resolving]

NARRATIVE: CASE EVENT DATE: 20170902
